FAERS Safety Report 12056727 (Version 2)
Quarter: 2016Q1

REPORT INFORMATION
  Report Type: Spontaneous
  Country: DE (occurrence: DE)
  Receive Date: 20160209
  Receipt Date: 20160216
  Transmission Date: 20160526
  Serious: Yes (Hospitalization)
  Sender: FDA-Public Use
  Company Number: DE-TEVA-630551GER

PATIENT
  Age: 53 Year
  Sex: Female

DRUGS (1)
  1. SALBUTAMOL-RATIOPHARM FERTIGINHALAT [Suspect]
     Active Substance: ALBUTEROL
     Indication: RESPIRATORY TRACT INFECTION
     Route: 055
     Dates: start: 20160126, end: 20160127

REACTIONS (7)
  - Tachypnoea [Not Recovered/Not Resolved]
  - Face oedema [Not Recovered/Not Resolved]
  - Rash [Not Recovered/Not Resolved]
  - Tachycardia [Not Recovered/Not Resolved]
  - Mouth swelling [Not Recovered/Not Resolved]
  - Bronchospasm [Not Recovered/Not Resolved]
  - Pruritus [Not Recovered/Not Resolved]

NARRATIVE: CASE EVENT DATE: 20160126
